FAERS Safety Report 10278157 (Version 2)
Quarter: 2014Q3

REPORT INFORMATION
  Report Type: Report from Study
  Country: CL (occurrence: CL)
  Receive Date: 20140704
  Receipt Date: 20140716
  Transmission Date: 20150326
  Serious: Yes (Hospitalization, Other)
  Sender: FDA-Public Use
  Company Number: PHHY2014CL082057

PATIENT
  Sex: Female

DRUGS (1)
  1. TAREG D [Suspect]
     Active Substance: HYDROCHLOROTHIAZIDE\VALSARTAN
     Indication: HYPERTENSION
     Dosage: 1 DF (320/25 MG), DAILY
     Route: 048

REACTIONS (11)
  - Stress [Unknown]
  - Thyroid disorder [Unknown]
  - Crying [Unknown]
  - Blood cholesterol increased [Unknown]
  - Emotional distress [Unknown]
  - Renal disorder [Unknown]
  - Insomnia [Unknown]
  - Fall [Unknown]
  - Dizziness [Recovered/Resolved]
  - Hearing impaired [Not Recovered/Not Resolved]
  - Anxiety [Unknown]
